FAERS Safety Report 7559277-6 (Version None)
Quarter: 2011Q2

REPORT INFORMATION
  Report Type: 
  Country: None (occurrence: None)
  Receive Date: 20110613
  Receipt Date: 20110602
  Transmission Date: 20111010
  Serious: Yes (Other)
  Sender: FDA-Public Use
  Company Number: JPI-P-015291

PATIENT
  Age: 61 Year
  Sex: Female

DRUGS (3)
  1. XYREM [Suspect]
     Indication: NARCOLEPSY
     Dosage: 4.5 GM (2.25 GM, 2 IN 1 D), ORAL 12 GM (6 GM, 2 IN 1 D), ORAL
     Route: 048
     Dates: start: 20060101, end: 20060101
  2. XYREM [Suspect]
     Indication: NARCOLEPSY
     Dosage: 4.5 GM (2.25 GM, 2 IN 1 D), ORAL 12 GM (6 GM, 2 IN 1 D), ORAL
     Route: 048
     Dates: start: 20060324
  3. XYREM [Suspect]
     Indication: NARCOLEPSY
     Dosage: 4.5 GM (2.25 GM, 2 IN 1 D), ORAL 12 GM (6 GM, 2 IN 1 D), ORAL
     Route: 048
     Dates: start: 20061227

REACTIONS (1)
  - BREAST CANCER FEMALE [None]
